FAERS Safety Report 15429606 (Version 1)
Quarter: 2018Q3

REPORT INFORMATION
  Report Type: Report from Study
  Country: US (occurrence: US)
  Receive Date: 20180926
  Receipt Date: 20180926
  Transmission Date: 20181010
  Serious: No
  Sender: FDA-Public Use
  Company Number: US-IPSEN BIOPHARMACEUTICALS, INC.-2015-4123

PATIENT
  Age: 13 Year
  Sex: Male

DRUGS (8)
  1. NUTROPIN AQ [Suspect]
     Active Substance: SOMATROPIN
     Route: 058
  2. CHOLECALCIFEROL [Concomitant]
     Active Substance: CHOLECALCIFEROL
     Route: 048
  3. NUTROPIN AQ [Suspect]
     Active Substance: SOMATROPIN
     Indication: PRODUCT USE IN UNAPPROVED INDICATION
     Dosage: ALTERNATING 1.8 MG AND 2.0 MG
     Route: 058
     Dates: end: 201503
  4. HYDROCORTISONE. [Concomitant]
     Active Substance: HYDROCORTISONE
     Route: 048
  5. NUTROPIN AQ [Suspect]
     Active Substance: SOMATROPIN
     Indication: BODY HEIGHT BELOW NORMAL
     Route: 058
  6. TACROLIMUS. [Concomitant]
     Active Substance: TACROLIMUS
     Route: 048
  7. LANSOPRAZOLE. [Concomitant]
     Active Substance: LANSOPRAZOLE
     Route: 048
  8. URSODIOL. [Concomitant]
     Active Substance: URSODIOL
     Route: 048

REACTIONS (13)
  - Anion gap increased [Unknown]
  - Fatigue [Unknown]
  - Pyrexia [Unknown]
  - Lymphocyte count increased [Unknown]
  - Back pain [Recovered/Resolved with Sequelae]
  - Blood creatinine decreased [Unknown]
  - Blood albumin decreased [Unknown]
  - Platelet count decreased [Unknown]
  - Haemoglobin decreased [Unknown]
  - Arthralgia [Recovered/Resolved]
  - Affective disorder [Unknown]
  - Red blood cell count decreased [Unknown]
  - Eosinophil count increased [Unknown]

NARRATIVE: CASE EVENT DATE: 201503
